FAERS Safety Report 17742284 (Version 2)
Quarter: 2020Q2

REPORT INFORMATION
  Report Type: Spontaneous
  Country: FR (occurrence: FR)
  Receive Date: 20200504
  Receipt Date: 20200512
  Transmission Date: 20200714
  Serious: Yes (Hospitalization, Other)
  Sender: FDA-Public Use
  Company Number: FR-PFIZER INC-2020176678

PATIENT
  Age: 78 Year
  Sex: Female
  Weight: 63 kg

DRUGS (1)
  1. METHOTREXATE SODIUM. [Suspect]
     Active Substance: METHOTREXATE SODIUM
     Indication: NEUROSARCOIDOSIS
     Dosage: 15 MG, WEEKLY
     Route: 048
     Dates: start: 201901, end: 20191025

REACTIONS (4)
  - Anaemia [Recovering/Resolving]
  - Product use in unapproved indication [Unknown]
  - Myelodysplastic syndrome [Recovered/Resolved]
  - Off label use [Unknown]

NARRATIVE: CASE EVENT DATE: 201901
